FAERS Safety Report 17172899 (Version 1)
Quarter: 2019Q4

REPORT INFORMATION
  Report Type: Spontaneous
  Country: NL (occurrence: GB)
  Receive Date: 20191219
  Receipt Date: 20191219
  Transmission Date: 20200122
  Serious: Yes (Other)
  Sender: FDA-Public Use
  Company Number: GB-BAYER-2019-230121

PATIENT
  Age: 21 Year
  Sex: Female
  Weight: 69.85 kg

DRUGS (1)
  1. YASMIN [Suspect]
     Active Substance: DROSPIRENONE\ETHINYL ESTRADIOL
     Indication: ACNE
     Dosage: 1 DF,QD
     Route: 048
     Dates: start: 20181115, end: 20191130

REACTIONS (2)
  - Suicidal ideation [Unknown]
  - Depression suicidal [Recovering/Resolving]

NARRATIVE: CASE EVENT DATE: 20190918
